FAERS Safety Report 9695155 (Version 1)
Quarter: 2013Q4

REPORT INFORMATION
  Report Type: Report from Study
  Country: US (occurrence: US)
  Receive Date: 20131119
  Receipt Date: 20131119
  Transmission Date: 20140711
  Serious: Yes (Other)
  Sender: FDA-Public Use
  Company Number: US-CELGENEUS-163-C4047-13112577

PATIENT
  Sex: 0

DRUGS (3)
  1. CC-4047 [Suspect]
     Indication: PLASMA CELL MYELOMA
     Dosage: 2, 3 OR 4MG
     Route: 048
  2. DEXAMETHASONE [Suspect]
     Indication: PLASMA CELL MYELOMA
     Dosage: OVER 30 MIN
     Route: 041
  3. PEGYLATED LIPOSOMAL DOXORUBICIN [Suspect]
     Indication: PLASMA CELL MYELOMA
     Dosage: OVER 30-90 MIN
     Route: 041

REACTIONS (7)
  - Duodenal ulcer [Unknown]
  - Neutropenia [Unknown]
  - Leukopenia [Unknown]
  - Lymphopenia [Unknown]
  - Anaemia [Unknown]
  - Hyponatraemia [Unknown]
  - Thrombocytopenia [Unknown]
